FAERS Safety Report 4631164-2 (Version None)
Quarter: 2005Q2

REPORT INFORMATION
  Report Type: 
  Country: None (occurrence: None)
  Receive Date: 20050407
  Receipt Date: 20050407
  Transmission Date: 20051028
  Serious: Yes (Life-Threatening, Hospitalization)
  Sender: FDA-Public Use
  Company Number: None

PATIENT
  Age: 63 Year
  Sex: Male
  Weight: 147 kg

DRUGS (7)
  1. CEPHALEXIN [Suspect]
     Indication: CELLULITIS
     Dosage: 500 MG PO BID
     Route: 048
     Dates: start: 20041227, end: 20050107
  2. ATENOLOL [Concomitant]
  3. FUROSEMIDE [Concomitant]
  4. GLIPIZIDE [Concomitant]
  5. METOLAZONE [Concomitant]
  6. SIMVASTATIN [Concomitant]
  7. LISINOPRIL [Concomitant]

REACTIONS (1)
  - NEPHRITIS INTERSTITIAL [None]
